FAERS Safety Report 4524795-1 (Version None)
Quarter: 2004Q4

REPORT INFORMATION
  Report Type: 
  Country: None (occurrence: None)
  Receive Date: 20041208
  Receipt Date: 20030804
  Transmission Date: 20050328
  Serious: Yes (Hospitalization)
  Sender: FDA-Public Use
  Company Number: MEDI-0002493

PATIENT
  Age: 77 Year

DRUGS (1)
  1. ETHYOL [Suspect]
     Indication: RADIOTHERAPY
     Dosage: SUBCUTANEOUS
     Route: 058

REACTIONS (6)
  - CHILLS [None]
  - DEHYDRATION [None]
  - NAUSEA [None]
  - PERFORMANCE STATUS DECREASED [None]
  - PYREXIA [None]
  - VOMITING [None]
